FAERS Safety Report 6982099-1 (Version None)
Quarter: 2010Q3

REPORT INFORMATION
  Report Type: 
  Country: None (occurrence: None)
  Receive Date: 20100914
  Receipt Date: 20091214
  Transmission Date: 20110219
  Serious: No
  Sender: FDA-Public Use
  Company Number: US-PFIZER INC-2009278037

PATIENT
  Sex: Male
  Weight: 101 kg

DRUGS (5)
  1. LYRICA [Suspect]
     Dosage: UNK
     Dates: start: 20090101, end: 20090101
  2. ENALAPRIL MALEATE [Concomitant]
     Indication: HYPERTENSION
     Dosage: UNK
  3. ZETIA [Concomitant]
     Dosage: 10 MG, UNK
  4. AMITRIPTYLINE [Concomitant]
     Dosage: UNK
  5. GEMFIBROZIL [Concomitant]
     Dosage: 600 MG, 1X/DAY

REACTIONS (3)
  - EUPHORIC MOOD [None]
  - RASH [None]
  - WEIGHT INCREASED [None]
